FAERS Safety Report 17901100 (Version 8)
Quarter: 2021Q3

REPORT INFORMATION
  Report Type: Spontaneous
  Country: US (occurrence: US)
  Receive Date: 20200616
  Receipt Date: 20210712
  Transmission Date: 20211014
  Serious: Yes (Hospitalization, Other)
  Sender: FDA-Public Use
  Company Number: US-PFIZER INC-2020233851

PATIENT
  Age: 73 Year
  Sex: Male
  Weight: 77.11 kg

DRUGS (13)
  1. VYNDAMAX [Suspect]
     Active Substance: TAFAMIDIS
     Indication: AMYLOIDOSIS
     Dosage: 61 MG, ONCE A DAY
     Route: 048
     Dates: start: 20190606
  2. ALLOPURINOL. [Suspect]
     Active Substance: ALLOPURINOL
     Dosage: 300 MG, TWICE DAILY
  3. SERTRALINE [Concomitant]
     Active Substance: SERTRALINE HYDROCHLORIDE
     Dosage: 50 MG
  4. TYLENOL [Concomitant]
     Active Substance: ACETAMINOPHEN
     Indication: PAIN
     Dosage: UNK, AS NEEDED (TAKES IT SOMETIMES IF HURTS, WILL EAT ONE)
  5. VYNDAMAX [Suspect]
     Active Substance: TAFAMIDIS
     Indication: CARDIOMYOPATHY
     Dosage: 61 MG, ONCE A DAY
     Route: 048
     Dates: start: 20190606
  6. POTASSIUM CHLORIDE. [Concomitant]
     Active Substance: POTASSIUM CHLORIDE
     Dosage: 20 MEQ, 2X/DAY (20 MEQ, ONE, TWICE A DAY)
  7. ELIQUIS [Concomitant]
     Active Substance: APIXABAN
     Indication: COAGULOPATHY
     Dosage: 2.5 MG, 2X/DAY (5MG; HALF IN THE MORNING AND HALF AT NIGHT)
  8. TORSEMIDE. [Concomitant]
     Active Substance: TORSEMIDE
     Indication: POLYURIA
     Dosage: 100 MG
  9. TORSEMIDE. [Concomitant]
     Active Substance: TORSEMIDE
     Dosage: 50 MG, ONCE A DAY
  10. VYNDAMAX [Suspect]
     Active Substance: TAFAMIDIS
     Indication: CARDIAC AMYLOIDOSIS
     Dosage: 61 MG, ALTERNATE DAY
     Route: 048
     Dates: start: 2021
  11. COLCHICINE. [Suspect]
     Active Substance: COLCHICINE
     Indication: GOUT
     Dosage: 0.6 MG, DAILY
  12. ALLOPURINOL. [Suspect]
     Active Substance: ALLOPURINOL
     Indication: GOUT
     Dosage: 300 MG ONCE DAILY
  13. POTASSIUM CHLORIDE. [Concomitant]
     Active Substance: POTASSIUM CHLORIDE
     Dosage: 20 MEQ, 1X/DAY (20 MEQ ONCE A DAY)

REACTIONS (12)
  - Malaise [Unknown]
  - Illness [Unknown]
  - Skin cancer [Unknown]
  - Intentional dose omission [Unknown]
  - Suicide attempt [Unknown]
  - Hip fracture [Not Recovered/Not Resolved]
  - Confusional state [Not Recovered/Not Resolved]
  - Heart rate decreased [Unknown]
  - Amnesia [Not Recovered/Not Resolved]
  - Stress [Unknown]
  - Arrhythmia [Unknown]
  - Therapeutic response unexpected [Unknown]

NARRATIVE: CASE EVENT DATE: 202010
